FAERS Safety Report 5374454-0 (Version None)
Quarter: 2007Q2

REPORT INFORMATION
  Report Type: 
  Country: None (occurrence: None)
  Receive Date: 20070629
  Receipt Date: 20070123
  Transmission Date: 20071010
  Serious: No
  Sender: FDA-Public Use
  Company Number: A0634507A

PATIENT
  Age: 13 Month
  Sex: Female
  Weight: 11.8 kg

DRUGS (5)
  1. ZINACEF [Suspect]
     Indication: LOWER RESPIRATORY TRACT INFECTION
     Route: 042
  2. ORAPRED [Concomitant]
     Route: 048
     Dates: start: 20061230, end: 20070104
  3. TRIAMINIC COLD + COUGH [Concomitant]
     Route: 048
     Dates: start: 20061230, end: 20070104
  4. ACETAMINOPHEN [Concomitant]
     Dosage: 120MG SIX TIMES PER DAY
     Route: 054
     Dates: start: 20061230, end: 20070104
  5. ZITHROMAX [Concomitant]
     Dosage: 2.75ML PER DAY
     Route: 048
     Dates: start: 20061231, end: 20070104

REACTIONS (3)
  - INJECTION SITE ERYTHEMA [None]
  - INJECTION SITE SWELLING [None]
  - INJECTION SITE VESICLES [None]
